FAERS Safety Report 6216283-1 (Version None)
Quarter: 2009Q2

REPORT INFORMATION
  Report Type: 
  Country: None (occurrence: None)
  Receive Date: 20090603
  Receipt Date: 20090603
  Transmission Date: 20091009
  Serious: No
  Sender: FDA-Public Use
  Company Number: None

PATIENT
  Age: 78 Year
  Sex: Male
  Weight: 73.5 kg

DRUGS (1)
  1. VANCOMYCIN HCL [Suspect]
     Dosage: 125 MO QID PO
     Route: 048
     Dates: start: 20081013, end: 20081028

REACTIONS (1)
  - THROMBOCYTOPENIA [None]
